FAERS Safety Report 25766287 (Version 1)
Quarter: 2025Q3

REPORT INFORMATION
  Report Type: Spontaneous
  Country: US (occurrence: US)
  Receive Date: 20250905
  Receipt Date: 20250905
  Transmission Date: 20251020
  Serious: Yes (Hospitalization)
  Sender: PFIZER
  Company Number: US-PFIZER INC-2016270763

PATIENT
  Age: 71 Year
  Sex: Female

DRUGS (11)
  1. MISOPROSTOL [Suspect]
     Active Substance: MISOPROSTOL
     Indication: Prophylaxis
     Route: 048
     Dates: start: 19890719
  2. CYTOTEC [Suspect]
     Active Substance: MISOPROSTOL
     Indication: Prophylaxis
     Route: 048
     Dates: start: 19890719
  3. TOLMETIN [Concomitant]
     Active Substance: TOLMETIN
  4. PREDNISONE [Concomitant]
     Active Substance: PREDNISONE
  5. AMITRIPTYLINE [Concomitant]
     Active Substance: AMITRIPTYLINE
  6. METHOTREXATE [Concomitant]
     Active Substance: METHOTREXATE
  7. SODIUM FLUORIDE [Concomitant]
     Active Substance: SODIUM FLUORIDE
     Dosage: 15 MG, 3X/DAY (15 1MG TABLET)
  8. SODIUM FLUORIDE [Concomitant]
     Active Substance: SODIUM FLUORIDE
  9. CALCIUM [Concomitant]
     Active Substance: CALCIUM
  10. TOLECTIN [Concomitant]
     Active Substance: TOLMETIN SODIUM
  11. VICODIN [Concomitant]
     Active Substance: ACETAMINOPHEN\HYDROCODONE BITARTRATE

REACTIONS (8)
  - Accidental overdose [Recovered/Resolved]
  - Nausea [Recovered/Resolved]
  - Abdominal pain [Recovered/Resolved]
  - Tremor [Recovered/Resolved]
  - Tachycardia [Recovered/Resolved]
  - Hypertension [Recovered/Resolved]
  - Pyrexia [Recovered/Resolved]
  - Chills [Recovered/Resolved]

NARRATIVE: CASE EVENT DATE: 19890919
